FAERS Safety Report 10881542 (Version 4)
Quarter: 2016Q3

REPORT INFORMATION
  Report Type: Report from Study
  Country: ES (occurrence: ES)
  Receive Date: 20150303
  Receipt Date: 20160915
  Transmission Date: 20161109
  Serious: Yes (Death, Hospitalization)
  Sender: FDA-Public Use
  Company Number: ES-ROCHE-1546812

PATIENT
  Age: 63 Year
  Sex: Male
  Weight: 81 kg

DRUGS (2)
  1. BENDAMUSTINE [Suspect]
     Active Substance: BENDAMUSTINE
     Indication: CHRONIC LYMPHOCYTIC LEUKAEMIA REFRACTORY
     Dosage: LAST DOSE PRIOR TO NEUTROPENIC FEVER AND FEVER: 28/JAN/2015?ON DAYS 2 AND 3 OF CYCLE 1
     Route: 042
     Dates: start: 20141016
  2. OBINUTUZUMAB [Suspect]
     Active Substance: OBINUTUZUMAB
     Indication: CHRONIC LYMPHOCYTIC LEUKAEMIA REFRACTORY
     Dosage: LAST DOSE PRIOR TO NEUTROPENIC FEVER AND FEVER: 26/JAN/2015?DAYS 1, 8, AND 15 OF CYCLE 1
     Route: 042
     Dates: start: 20141007

REACTIONS (2)
  - Febrile neutropenia [Recovered/Resolved]
  - Pyrexia [Fatal]

NARRATIVE: CASE EVENT DATE: 20150224
